FAERS Safety Report 24782716 (Version 1)
Quarter: 2024Q4

REPORT INFORMATION
  Report Type: Spontaneous
  Country: US (occurrence: US)
  Receive Date: 20241227
  Receipt Date: 20241227
  Transmission Date: 20250114
  Serious: Yes (Other)
  Sender: PFIZER
  Company Number: US-PFIZER INC-2020277390

PATIENT
  Age: 69 Year
  Sex: Female

DRUGS (7)
  1. XELJANZ XR [Suspect]
     Active Substance: TOFACITINIB CITRATE
     Dosage: 11 MG, EVERYDAY
     Route: 048
  2. CALCIUM [Concomitant]
     Active Substance: CALCIUM
  3. ASPIRIN [Concomitant]
     Active Substance: ASPIRIN
     Indication: Cardiac disorder
  4. ZINC [Concomitant]
     Active Substance: ZINC
  5. POTASSIUM [Concomitant]
     Active Substance: POTASSIUM
  6. IRON [Concomitant]
     Active Substance: IRON
  7. VITAMIN D3 [Concomitant]
     Active Substance: CHOLECALCIFEROL

REACTIONS (4)
  - Pyelonephritis [Unknown]
  - Renal impairment [Unknown]
  - Blood creatinine increased [Unknown]
  - Glomerular filtration rate decreased [Unknown]
